FAERS Safety Report 12216170 (Version 1)
Quarter: 2016Q1

REPORT INFORMATION
  Report Type: Spontaneous
  Country: US (occurrence: US)
  Receive Date: 20160329
  Receipt Date: 20160329
  Transmission Date: 20160526
  Serious: Yes (Hospitalization)
  Sender: FDA-Public Use
  Company Number: US-BEH-2016060403

PATIENT
  Sex: Female
  Weight: 112 kg

DRUGS (28)
  1. AUGMENTIN [Concomitant]
     Active Substance: AMOXICILLIN\CLAVULANATE POTASSIUM
  2. ZITHROMAX [Concomitant]
     Active Substance: AZITHROMYCIN DIHYDRATE
  3. ACETAMINOPHEN. [Concomitant]
     Active Substance: ACETAMINOPHEN
  4. DIPHENHYDRAMINE. [Concomitant]
     Active Substance: DIPHENHYDRAMINE
  5. LIDOCAINE/PRILOCAINE [Concomitant]
  6. ASTEPRO [Concomitant]
     Active Substance: AZELASTINE HYDROCHLORIDE
  7. CALCIUM [Concomitant]
     Active Substance: CALCIUM
  8. RANITIDINE [Concomitant]
     Active Substance: RANITIDINE\RANITIDINE HYDROCHLORIDE
  9. REFRESH [Concomitant]
     Active Substance: UNSPECIFIED INGREDIENT
  10. LMX [Concomitant]
     Active Substance: LIDOCAINE
  11. CEFTIN [Concomitant]
     Active Substance: CEFUROXIME AXETIL
  12. EPIPEN [Concomitant]
     Active Substance: EPINEPHRINE
  13. NEURONTIN [Concomitant]
     Active Substance: GABAPENTIN
  14. FLONASE [Concomitant]
     Active Substance: FLUTICASONE PROPIONATE
  15. ZYRTEC [Concomitant]
     Active Substance: CETIRIZINE HYDROCHLORIDE
  16. IBUPROFEN. [Concomitant]
     Active Substance: IBUPROFEN
  17. HIZENTRA [Suspect]
     Active Substance: HUMAN IMMUNOGLOBULIN G
     Indication: HYPOGAMMAGLOBULINAEMIA
     Dosage: 10 GM 50 ML VIAL
     Route: 058
  18. TRAMADOL. [Concomitant]
     Active Substance: TRAMADOL
  19. HIZENTRA [Suspect]
     Active Substance: HUMAN IMMUNOGLOBULIN G
     Route: 058
     Dates: start: 20110317
  20. XOPENEX [Concomitant]
     Active Substance: LEVALBUTEROL HYDROCHLORIDE
  21. MUCINEX [Concomitant]
     Active Substance: GUAIFENESIN
  22. GABAPENTIN. [Concomitant]
     Active Substance: GABAPENTIN
  23. NEXIUM [Concomitant]
     Active Substance: ESOMEPRAZOLE MAGNESIUM
  24. VITAMIN B [Concomitant]
     Active Substance: VITAMIN B
  25. IRON [Concomitant]
     Active Substance: IRON
  26. ASTELIN [Concomitant]
     Active Substance: AZELASTINE HYDROCHLORIDE
  27. MAXALT [Concomitant]
     Active Substance: RIZATRIPTAN BENZOATE
  28. FOSAMAX [Concomitant]
     Active Substance: ALENDRONATE SODIUM

REACTIONS (1)
  - Hospitalisation [Unknown]
